FAERS Safety Report 23971355 (Version 2)
Quarter: 2024Q2

REPORT INFORMATION
  Report Type: Spontaneous
  Country: PL (occurrence: PL)
  Receive Date: 20240613
  Receipt Date: 20240628
  Transmission Date: 20240716
  Serious: Yes (Death, Hospitalization)
  Sender: FDA-Public Use
  Company Number: PL-TEVA-VS-3208082

PATIENT
  Age: 49 Year
  Sex: Male

DRUGS (1)
  1. METHOTREXATE [Suspect]
     Active Substance: METHOTREXATE
     Indication: Product used for unknown indication
     Route: 065

REACTIONS (10)
  - Toxicity to various agents [Fatal]
  - Diarrhoea [Fatal]
  - Pancytopenia [Fatal]
  - Pyrexia [Fatal]
  - Skin haemorrhage [Fatal]
  - Product dispensing error [Fatal]
  - Dyspnoea [Unknown]
  - Overdose [Fatal]
  - Dermatitis [Unknown]
  - Epistaxis [Fatal]
